FAERS Safety Report 12526521 (Version 1)
Quarter: 2016Q3

REPORT INFORMATION
  Report Type: Spontaneous
  Country: US (occurrence: None)
  Receive Date: 20160701
  Receipt Date: 20160701
  Transmission Date: 20161109
  Serious: No
  Sender: FDA-Public Use
  Company Number: None

PATIENT
  Age: 41 Year
  Sex: Female

DRUGS (9)
  1. LIDOCAIN [Concomitant]
     Active Substance: LIDOCAINE
  2. DOCQLACE [Concomitant]
     Active Substance: DOCUSATE SODIUM
  3. COD [Concomitant]
     Active Substance: ATLANTIC COD
  4. SIMPONI [Suspect]
     Active Substance: GOLIMUMAB
     Indication: CROHN^S DISEASE
     Route: 058
     Dates: end: 201606
  5. PREDNISON [Concomitant]
     Active Substance: PREDNISONE
  6. RECTICARE [Concomitant]
     Active Substance: LIDOCAINE
  7. AMOX/K CLAV [Concomitant]
     Active Substance: AMOXICILLIN\CLAVULANATE POTASSIUM
  8. IRON [Concomitant]
     Active Substance: IRON
  9. CRANBERRY. [Concomitant]
     Active Substance: CRANBERRY

REACTIONS (1)
  - Surgery [None]

NARRATIVE: CASE EVENT DATE: 201606
